FAERS Safety Report 8514145-8 (Version None)
Quarter: 2012Q3

REPORT INFORMATION
  Report Type: 
  Country: None (occurrence: None)
  Receive Date: 20120717
  Receipt Date: 20120707
  Transmission Date: 20120928
  Serious: Yes (Life-Threatening, Hospitalization, Other)
  Sender: FDA-Public Use
  Company Number: US-MPIJNJ-2012-04057

PATIENT
  Sex: Male
  Weight: 31.8 kg

DRUGS (7)
  1. CYTARABINE [Suspect]
     Dosage: 100 MG/KG, BID
     Route: 042
     Dates: start: 20120601, end: 20120603
  2. ATIVAN [Suspect]
     Indication: PRODUCT USED FOR UNKNOWN INDICATION
     Dosage: UNK
  3. FENTANYL [Suspect]
     Indication: PRODUCT USED FOR UNKNOWN INDICATION
  4. VELCADE [Suspect]
     Indication: ACUTE MYELOID LEUKAEMIA
     Dosage: 1.3 MG/M2, CYCLIC
     Route: 040
     Dates: start: 20120601, end: 20120601
  5. DAUNORUBICIN HYDROCHLORIDE [Suspect]
     Indication: ACUTE MYELOID LEUKAEMIA
     Dosage: 50 MG/M2, CYCLIC
     Route: 042
     Dates: start: 20120601, end: 20120605
  6. ETOPOSIDE [Suspect]
     Indication: ACUTE MYELOID LEUKAEMIA
     Dosage: 100 MG/M2, CYCLIC
     Route: 042
     Dates: start: 20120601, end: 20120605
  7. CYTARABINE [Suspect]
     Indication: ACUTE MYELOID LEUKAEMIA
     Dosage: UNK
     Route: 037
     Dates: start: 20120601, end: 20120611

REACTIONS (19)
  - RENAL FAILURE ACUTE [None]
  - ASPARTATE AMINOTRANSFERASE INCREASED [None]
  - CARDIAC FAILURE [None]
  - LEFT VENTRICULAR DYSFUNCTION [None]
  - ANAEMIA [None]
  - ABDOMINAL PAIN [None]
  - TUMOUR LYSIS SYNDROME [None]
  - PERICARDIAL EFFUSION [None]
  - SINUS TACHYCARDIA [None]
  - DYSPNOEA [None]
  - PNEUMONITIS [None]
  - RESPIRATORY FAILURE [None]
  - HYPOTENSION [None]
  - EJECTION FRACTION DECREASED [None]
  - ACIDOSIS [None]
  - DELIRIUM [None]
  - HYPERTENSION [None]
  - ANGINA PECTORIS [None]
  - HYPOCALCAEMIA [None]
